FAERS Safety Report 24156766 (Version 1)
Quarter: 2024Q3

REPORT INFORMATION
  Report Type: Spontaneous
  Country: US (occurrence: None)
  Receive Date: 20240730
  Receipt Date: 20240730
  Transmission Date: 20241017
  Serious: Yes (unspecified)
  Sender: Public
  Company Number: None

PATIENT
  Age: 34 Year
  Sex: Female
  Weight: 72.45 kg

DRUGS (1)
  1. LEVOFLOXACIN [Suspect]
     Active Substance: LEVOFLOXACIN
     Dates: start: 20240726, end: 20240730

REACTIONS (3)
  - Pain in extremity [None]
  - Tendonitis [None]
  - Nerve injury [None]

NARRATIVE: CASE EVENT DATE: 20240727
